FAERS Safety Report 10149180 (Version 3)
Quarter: 2014Q2

REPORT INFORMATION
  Report Type: Spontaneous
  Country: DK (occurrence: DK)
  Receive Date: 20140502
  Receipt Date: 20140515
  Transmission Date: 20141212
  Serious: Yes (Other)
  Sender: FDA-Public Use
  Company Number: DK-AMGEN-DNKSP2014020038

PATIENT
  Age: 85 Year
  Sex: Female
  Weight: 60 kg

DRUGS (2)
  1. PROLIA [Suspect]
     Indication: OSTEOPOROSIS POSTMENOPAUSAL
     Dosage: 60 MG/ML, Q6MO
     Route: 058
     Dates: start: 20131007, end: 20140103
  2. LANSOPRAZOLE [Concomitant]
     Dosage: 15 MG X 1

REACTIONS (33)
  - Vaginal abscess [Recovered/Resolved]
  - Groin abscess [Recovered/Resolved]
  - Weight decreased [Unknown]
  - Body height decreased [Unknown]
  - Lichen planus [Recovering/Resolving]
  - Rash papular [Recovered/Resolved]
  - Blister [Recovered/Resolved]
  - Rash generalised [Recovered/Resolved]
  - Decreased appetite [Recovering/Resolving]
  - Skin burning sensation [Recovered/Resolved]
  - Skin exfoliation [Recovered/Resolved]
  - Depressed mood [Unknown]
  - Oral pain [Unknown]
  - Papule [Recovered/Resolved]
  - Skin atrophy [Recovered/Resolved]
  - Eye inflammation [Unknown]
  - Pruritus generalised [Recovered/Resolved]
  - Abdominal pain [Unknown]
  - Dyspepsia [Unknown]
  - Pain [Unknown]
  - Alopecia [Unknown]
  - Vulvovaginal pruritus [Unknown]
  - Vulvovaginal burning sensation [Unknown]
  - Oral disorder [Unknown]
  - Lichenoid keratosis [Recovered/Resolved]
  - Nausea [Unknown]
  - Hiatus hernia [Unknown]
  - Generalised erythema [Recovered/Resolved]
  - Discomfort [Unknown]
  - Urinary tract infection [Unknown]
  - Cystitis [Unknown]
  - Pruritus [Recovered/Resolved]
  - Back pain [Unknown]
